FAERS Safety Report 8010578-7 (Version None)
Quarter: 2011Q4

REPORT INFORMATION
  Report Type: 
  Country: None (occurrence: None)
  Receive Date: 20111222
  Receipt Date: 20111219
  Transmission Date: 20120403
  Serious: Yes (Death, Hospitalization)
  Sender: FDA-Public Use
  Company Number: 1000025083

PATIENT
  Age: 66 Year
  Sex: Male
  Weight: 98.8 kg

DRUGS (14)
  1. HYDROCODONE/APAP (HYDROCODONE, ACETAMINOPHEN) (HYDROCODONE, ACETAMINOP [Concomitant]
  2. ZETIA (EZETIMIBE) (TABLETS) (EZETIMIBE) [Concomitant]
  3. ZOCOR (SIMVASTATIN) (TABLETS) (SIMVASTATIN) [Concomitant]
  4. JANUMET (SITAGLIPTAN, METFORMIN) (TABLETS) (SITAGLIPTAN, METFORMIN) [Concomitant]
  5. DALIRESP [Suspect]
     Indication: CHRONIC OBSTRUCTIVE PULMONARY DISEASE
     Dosage: 500 MCG (500 MG,1 IN 1 D),ORAL
     Route: 048
     Dates: start: 20111020, end: 20111020
  6. CIPRO (CIPROFLOXACIN) (TABLETS) (CIPROFLOXACIN) [Concomitant]
  7. SPIRIVA (TIOTROPIUM BROMIDE) (TIOTROPIUM BROMIDE) [Concomitant]
  8. SYMBICORT (BUDESONIDE W/FORMOTEROL FUMARATE) (BUDESONIDE W/FORMOTEROL [Concomitant]
  9. PLAVIX (CLOPIDOGREL BISULFATE) (TABLETS) (CLOPIDOGREL BISULFATE) [Concomitant]
  10. ADVAIR DISKUS (FLUTICASONE, SALMETEROL) (FLUTICASONE, SALMETEROL) [Concomitant]
  11. COUMADIN (WARFARIN) (TABLETS) (WARFARIN) [Concomitant]
  12. NEXIUM (ESOMEPRAZOLE) (CAPSULES) (ESOMEPRAZOLE) [Concomitant]
  13. CARDIZEM CD (DILTIAZEM HYDROCHLORIDE) (DILTIAZEM HYDROCHLORIDE) [Concomitant]
  14. MYCOSTATIN (NYSTATIN) (NYSTATIN) [Concomitant]

REACTIONS (1)
  - CEREBRAL HAEMORRHAGE [None]
